FAERS Safety Report 5493157-5 (Version None)
Quarter: 2007Q4

REPORT INFORMATION
  Report Type: 
  Country: None (occurrence: None)
  Receive Date: 20071019
  Receipt Date: 20071003
  Transmission Date: 20080405
  Serious: Yes (Other)
  Sender: FDA-Public Use
  Company Number: 2007JP004619

PATIENT
  Age: 5 Month
  Sex: Male

DRUGS (1)
  1. PROGRAF [Suspect]
     Indication: LIVER TRANSPLANT

REACTIONS (4)
  - EPSTEIN-BARR VIRUS INFECTION [None]
  - EVANS SYNDROME [None]
  - OEDEMA [None]
  - WHITE BLOOD CELL COUNT INCREASED [None]
